FAERS Safety Report 4770885-8 (Version None)
Quarter: 2005Q3

REPORT INFORMATION
  Report Type: 
  Country: None (occurrence: None)
  Receive Date: 20050915
  Receipt Date: 20050907
  Transmission Date: 20060218
  Serious: Yes (Disabling)
  Sender: FDA-Public Use
  Company Number: US-ROCHE-417107

PATIENT
  Age: 13 Year
  Sex: Female
  Weight: 59 kg

DRUGS (1)
  1. ACCUTANE [Suspect]
     Indication: DRUG USE FOR UNKNOWN INDICATION
     Route: 065

REACTIONS (5)
  - FATIGUE [None]
  - HEADACHE [None]
  - MYALGIA [None]
  - PAIN [None]
  - PHARYNGOLARYNGEAL PAIN [None]
